FAERS Safety Report 18398927 (Version 6)
Quarter: 2021Q1

REPORT INFORMATION
  Report Type: Report from Study
  Country: None (occurrence: US)
  Receive Date: 20201019
  Receipt Date: 20210210
  Transmission Date: 20210419
  Serious: Yes (Hospitalization, Other)
  Sender: FDA-Public Use
  Company Number: US-ABBVIE-20K-163-3597835-00

PATIENT
  Age: 87 Year
  Sex: Female
  Weight: 49.94 kg

DRUGS (15)
  1. TRIAMTERENE. [Concomitant]
     Active Substance: TRIAMTERENE
     Indication: FLUID RETENTION
     Dosage: 1/2 TAB DAILY
     Route: 048
  2. CIPROFLOXACIN. [Suspect]
     Active Substance: CIPROFLOXACIN
     Indication: GASTROINTESTINAL INFECTION
     Route: 065
     Dates: start: 202010, end: 202010
  3. ESCITALOPRAM [Concomitant]
     Active Substance: ESCITALOPRAM OXALATE
     Indication: ANXIETY
  4. PROLIA [Concomitant]
     Active Substance: DENOSUMAB
     Indication: OSTEOPOROSIS
  5. HUMIRA [Suspect]
     Active Substance: ADALIMUMAB
     Indication: RHEUMATOID ARTHRITIS
     Route: 058
  6. CALCIUM [Suspect]
     Active Substance: CALCIUM
     Indication: VITAMIN SUPPLEMENTATION
     Route: 065
     Dates: end: 202010
  7. HUMIRA [Suspect]
     Active Substance: ADALIMUMAB
     Indication: RHEUMATOID ARTHRITIS
     Route: 058
     Dates: start: 202004, end: 202011
  8. ASPIRIN. [Concomitant]
     Active Substance: ASPIRIN
     Indication: PRODUCT USED FOR UNKNOWN INDICATION
  9. MAGNESIUM [Concomitant]
     Active Substance: MAGNESIUM
     Indication: VITAMIN SUPPLEMENTATION
  10. ANORO ELLIPTA [Concomitant]
     Active Substance: UMECLIDINIUM BROMIDE\VILANTEROL TRIFENATATE
     Indication: CHRONIC OBSTRUCTIVE PULMONARY DISEASE
     Route: 055
  11. POTASSIUM [Concomitant]
     Active Substance: POTASSIUM
     Indication: VITAMIN SUPPLEMENTATION
  12. VITAMIN D [Concomitant]
     Active Substance: VITAMIN D NOS
     Indication: VITAMIN SUPPLEMENTATION
  13. ESCITALOPRAM [Concomitant]
     Active Substance: ESCITALOPRAM OXALATE
     Indication: DEPRESSION
     Route: 048
  14. ALLOPURINOL. [Concomitant]
     Active Substance: ALLOPURINOL
     Indication: GOUT
     Route: 048
  15. FLONASE [Concomitant]
     Active Substance: FLUTICASONE PROPIONATE
     Indication: HYPERSENSITIVITY

REACTIONS (33)
  - Product packaging issue [Unknown]
  - Unevaluable event [Recovered/Resolved]
  - Liquid product physical issue [Unknown]
  - Large intestinal obstruction [Recovered/Resolved]
  - Kidney infection [Recovered/Resolved]
  - Cerebrovascular accident [Not Recovered/Not Resolved]
  - Pain [Not Recovered/Not Resolved]
  - Muscle spasms [Unknown]
  - Illness [Recovered/Resolved]
  - Dysuria [Recovered/Resolved]
  - Laboratory test abnormal [Recovered/Resolved]
  - Bacterial sepsis [Recovered/Resolved]
  - Nail infection [Unknown]
  - Fatigue [Not Recovered/Not Resolved]
  - Infection [Unknown]
  - Dyspnoea [Recovered/Resolved]
  - Gastrointestinal bacterial infection [Recovering/Resolving]
  - Hot flush [Not Recovered/Not Resolved]
  - Haematochezia [Recovered/Resolved]
  - Urinary tract infection bacterial [Recovered/Resolved]
  - Malaise [Recovering/Resolving]
  - Hunger [Not Recovered/Not Resolved]
  - Insomnia [Recovering/Resolving]
  - Swelling [Recovering/Resolving]
  - Hypophagia [Recovered/Resolved]
  - Malaise [Recovered/Resolved]
  - Gastrointestinal disorder [Unknown]
  - Laboratory test abnormal [Not Recovered/Not Resolved]
  - Constipation [Recovered/Resolved]
  - Pain [Recovered/Resolved]
  - Myocardial infarction [Not Recovered/Not Resolved]
  - Pain in extremity [Unknown]
  - Colitis [Not Recovered/Not Resolved]

NARRATIVE: CASE EVENT DATE: 2020
